FAERS Safety Report 7434391-4 (Version None)
Quarter: 2011Q2

REPORT INFORMATION
  Report Type: 
  Country: None (occurrence: None)
  Receive Date: 20110425
  Receipt Date: 20110413
  Transmission Date: 20111010
  Serious: Yes (Hospitalization, Other)
  Sender: FDA-Public Use
  Company Number: PHHY2010MX43735

PATIENT
  Sex: Female

DRUGS (6)
  1. CORDARONE [Concomitant]
     Dosage: UNK
  2. AVALIDE [Concomitant]
     Dosage: PER DAY
  3. ASPIRIN [Concomitant]
     Dosage: PER DAY
  4. LIPITOR [Concomitant]
     Dosage: PER DAY
  5. ACLASTA [Suspect]
     Dosage: 5 MG
     Route: 042
     Dates: start: 20091122
  6. TELMISARTAN AND HYDROCHLOROTHIAZIDE [Concomitant]
     Dosage: PER DAY

REACTIONS (4)
  - MYOCARDIAL INFARCTION [None]
  - CORONARY ARTERY OCCLUSION [None]
  - BLOOD CHOLESTEROL INCREASED [None]
  - BLOOD TRIGLYCERIDES INCREASED [None]
